FAERS Safety Report 5622842-7 (Version None)
Quarter: 2008Q1

REPORT INFORMATION
  Report Type: 
  Country: None (occurrence: None)
  Receive Date: 20080208
  Receipt Date: 20080208
  Transmission Date: 20080703
  Serious: Yes (Hospitalization)
  Sender: FDA-Public Use
  Company Number: None

PATIENT
  Age: 78 Year
  Sex: Female
  Weight: 64.8644 kg

DRUGS (6)
  1. ERTAPENEM [Suspect]
     Indication: ENTEROCOCCAL INFECTION
     Dosage: 1 G IV DAILY LONG TERM AT NH
     Route: 042
  2. ERTAPENEM [Suspect]
     Indication: STAPHYLOCOCCAL INFECTION
     Dosage: 1 G IV DAILY LONG TERM AT NH
     Route: 042
  3. ERTAPENEM [Suspect]
     Indication: WOUND INFECTION BACTERIAL
     Dosage: 1 G IV DAILY LONG TERM AT NH
     Route: 042
  4. LINEZOLID [Suspect]
     Dosage: 600MG IV ~4-6 WKS
     Route: 042
  5. BACTRIM [Concomitant]
  6. BACITRACIN [Concomitant]

REACTIONS (5)
  - CONVULSION [None]
  - LIP SWELLING [None]
  - MENTAL STATUS CHANGES [None]
  - RASH [None]
  - SWELLING FACE [None]
